FAERS Safety Report 6647374-9 (Version None)
Quarter: 2010Q1

REPORT INFORMATION
  Report Type: 
  Country: None (occurrence: None)
  Receive Date: 20100323
  Receipt Date: 20100317
  Transmission Date: 20100710
  Serious: Yes (Other)
  Sender: FDA-Public Use
  Company Number: US-BAYER-201013690NA

PATIENT
  Age: 14 Year
  Sex: Male

DRUGS (5)
  1. MAGNEVIST [Suspect]
     Indication: NUCLEAR MAGNETIC RESONANCE IMAGING
     Dates: start: 20100205, end: 20100205
  2. METHOTREXATE [Concomitant]
     Dosage: DOSE: 25MG 0.8ML ONCE A WEEK
  3. ENBREL [Concomitant]
     Dosage: 25MG 1.5 ML ONCE A WEEK
  4. ADDERALL 30 [Concomitant]
     Dosage: TOTAL DAILY DOSE: 15 MG
  5. MOBIC [Concomitant]
     Dosage: TOTAL DAILY DOSE: 7.5 MG

REACTIONS (4)
  - LIP SWELLING [None]
  - SNEEZING [None]
  - SWELLING FACE [None]
  - VOMITING [None]
